FAERS Safety Report 17950990 (Version 1)
Quarter: 2020Q2

REPORT INFORMATION
  Report Type: Spontaneous
  Country: FR (occurrence: FR)
  Receive Date: 20200626
  Receipt Date: 20200626
  Transmission Date: 20200714
  Serious: Yes (Hospitalization)
  Sender: FDA-Public Use
  Company Number: FR-GLAXOSMITHKLINE-FR2020110375

PATIENT
  Age: 10 Day
  Sex: Male
  Weight: 3.46 kg

DRUGS (1)
  1. ZOVIRAX [Suspect]
     Active Substance: ACYCLOVIR
     Indication: MENINGITIS HERPES
     Dosage: 60 MG, TID
     Route: 041
     Dates: start: 20190730, end: 20190805

REACTIONS (3)
  - Peripheral ischaemia [Recovered/Resolved]
  - Local reaction [Recovered/Resolved]
  - Vasospasm [Recovered/Resolved]

NARRATIVE: CASE EVENT DATE: 20190730
